FAERS Safety Report 5781318-7 (Version None)
Quarter: 2008Q2

REPORT INFORMATION
  Report Type: 
  Country: None (occurrence: None)
  Receive Date: 20080623
  Receipt Date: 20080522
  Transmission Date: 20081010
  Serious: No
  Sender: FDA-Public Use
  Company Number: US-BAYER-200823980NA

PATIENT
  Age: 33 Year
  Sex: Female
  Weight: 98 kg

DRUGS (1)
  1. YAZ [Suspect]
     Indication: CONTRACEPTION
     Route: 048
     Dates: start: 20070701

REACTIONS (2)
  - AMENORRHOEA [None]
  - HYPOMENORRHOEA [None]
